FAERS Safety Report 26215382 (Version 1)
Quarter: 2025Q4

REPORT INFORMATION
  Report Type: Other
  Country: EU (occurrence: EU)
  Receive Date: 20251231
  Receipt Date: 20251231
  Transmission Date: 20260118
  Serious: Yes (Life-Threatening)
  Sender: Atnahs Healthcare
  Company Number: None

PATIENT

DRUGS (1)
  1. DIAZEPAM [Suspect]
     Active Substance: DIAZEPAM
     Indication: Poisoning deliberate
     Dosage: UNK
     Route: 048
     Dates: start: 20251023, end: 20251023

REACTIONS (3)
  - Acute respiratory distress syndrome [Recovered/Resolved]
  - Depressed level of consciousness [Recovered/Resolved]
  - Intentional overdose [Recovered/Resolved]

NARRATIVE: CASE EVENT DATE: 20251023
